FAERS Safety Report 15615459 (Version 1)
Quarter: 2018Q4

REPORT INFORMATION
  Report Type: Spontaneous
  Country: MA (occurrence: MA)
  Receive Date: 20181114
  Receipt Date: 20181114
  Transmission Date: 20190205
  Serious: Yes (Hospitalization, Other)
  Sender: FDA-Public Use
  Company Number: MA-INGENUS PHARMACEUTICALS NJ, LLC-ING201811-001050

PATIENT
  Age: 49 Year
  Sex: Female

DRUGS (2)
  1. CLOPIDOGREL [Concomitant]
     Active Substance: CLOPIDOGREL BISULFATE
  2. CARISOPRODOL, ASPIRIN AND CODEINE PHOSPHATE [Suspect]
     Active Substance: ASPIRIN\CARISOPRODOL\CODEINE PHOSPHATE
     Indication: ARTHRALGIA

REACTIONS (3)
  - Chest pain [Recovered/Resolved]
  - Asthma [Recovered/Resolved]
  - Kounis syndrome [Recovered/Resolved]
